FAERS Safety Report 7301543-3 (Version None)
Quarter: 2011Q1

REPORT INFORMATION
  Report Type: 
  Country: None (occurrence: None)
  Receive Date: 20110218
  Receipt Date: 20110210
  Transmission Date: 20110831
  Serious: Yes (Hospitalization)
  Sender: FDA-Public Use
  Company Number: US-B.I. PHARMACEUTICALS,INC./RIDGEFIELD-2011-BP-02627BP

PATIENT
  Age: 82 Year
  Sex: Male

DRUGS (6)
  1. ASPIRIN [Concomitant]
     Indication: ATRIAL FIBRILLATION
  2. COREG [Concomitant]
     Indication: CARDIAC DISORDER
     Dosage: 6.25 MG
  3. PRADAXA [Suspect]
     Indication: ATRIAL FIBRILLATION
     Dosage: 300 MG
     Route: 048
     Dates: start: 20101101, end: 20110209
  4. PRILOSEC [Concomitant]
     Indication: GASTRITIS
     Dosage: 40 MG
  5. PLAVIX [Concomitant]
     Indication: ATRIAL FIBRILLATION
     Dosage: 75 MG
  6. LIPITOR [Concomitant]
     Indication: BLOOD CHOLESTEROL INCREASED

REACTIONS (6)
  - HAEMOGLOBIN DECREASED [None]
  - ABDOMINAL INFECTION [None]
  - DRY MOUTH [None]
  - GASTRITIS [None]
  - DYSPNOEA [None]
  - DIZZINESS [None]
